FAERS Safety Report 23851085 (Version 2)
Quarter: 2024Q3

REPORT INFORMATION
  Report Type: Spontaneous
  Country: US (occurrence: US)
  Receive Date: 20240514
  Receipt Date: 20240806
  Transmission Date: 20241017
  Serious: No
  Sender: Tarsus Pharmaceuticals
  Company Number: US-TARSUS PHARMACEUTICALS-TSP-US-2024-000145

PATIENT
  Age: 19 Year
  Sex: Male

DRUGS (2)
  1. XDEMVY [Suspect]
     Active Substance: LOTILANER
     Indication: Demodex blepharitis
     Dosage: UNK, BID (FOR 43 DAYS)
     Route: 065
     Dates: start: 20240223, end: 20240224
  2. XDEMVY [Suspect]
     Active Substance: LOTILANER
     Indication: Blepharitis

REACTIONS (3)
  - Ocular hyperaemia [Recovered/Resolved]
  - Vision blurred [Recovered/Resolved]
  - Instillation site irritation [Recovered/Resolved]

NARRATIVE: CASE EVENT DATE: 20240223
